FAERS Safety Report 19321672 (Version 2)
Quarter: 2021Q2

REPORT INFORMATION
  Report Type: Spontaneous
  Country: US (occurrence: US)
  Receive Date: 20210528
  Receipt Date: 20210630
  Transmission Date: 20210717
  Serious: No
  Sender: FDA-Public Use
  Company Number: US-ASTRAZENECA-2021A375812

PATIENT
  Sex: Female
  Weight: 62.6 kg

DRUGS (2)
  1. SYMBICORT [Suspect]
     Active Substance: BUDESONIDE\FORMOTEROL FUMARATE DIHYDRATE
     Indication: CHRONIC OBSTRUCTIVE PULMONARY DISEASE
     Dosage: 2 INHALATIONS TWICE DAILY
     Route: 055
  2. SYMBICORT AUTHORIZED GENERIC [Suspect]
     Active Substance: BUDESONIDE\FORMOTEROL FUMARATE
     Dosage: 2 INHALATIONS ONCE/SINGLE ADMINISTRATION
     Route: 055

REACTIONS (6)
  - Weight decreased [Unknown]
  - Body height decreased [Unknown]
  - Dyspnoea [Recovering/Resolving]
  - Drug dose omission by device [Unknown]
  - Device malfunction [Unknown]
  - Intentional device misuse [Unknown]
